FAERS Safety Report 17264275 (Version 2)
Quarter: 2022Q1

REPORT INFORMATION
  Report Type: Spontaneous
  Country: US (occurrence: US)
  Receive Date: 20200113
  Receipt Date: 20220108
  Transmission Date: 20220423
  Serious: Yes (Death, Other)
  Sender: FDA-Public Use
  Company Number: US-AMGEN-USASP2020002704

PATIENT

DRUGS (15)
  1. BLINATUMOMAB [Suspect]
     Active Substance: BLINATUMOMAB
     Indication: Acute lymphocytic leukaemia
     Dosage: UNK, CYCLICAL
     Route: 065
  2. CYCLOPHOSPHAMIDE [Concomitant]
     Active Substance: CYCLOPHOSPHAMIDE
     Dosage: 150 MILLIGRAM/SQ. METER, Q12H
  3. VINCRISTINE [Concomitant]
     Active Substance: VINCRISTINE
     Dosage: 2 MILLIGRAM
  4. DEXAMETHASONE [Concomitant]
     Active Substance: DEXAMETHASONE
     Dosage: 20 MILLIGRAM
  5. METHOTREXATE [Concomitant]
     Active Substance: METHOTREXATE
     Dosage: 250 MICROGRAM/SQ. METER
  6. CYTARABINE [Concomitant]
     Active Substance: CYTARABINE
     Dosage: 0.5 GRAM PER SQUARE METRE, Q12H
  7. RITUXIMAB [Concomitant]
     Active Substance: RITUXIMAB
  8. INOTUZUMAB OZOGAMICIN [Concomitant]
     Active Substance: INOTUZUMAB OZOGAMICIN
     Dosage: 1.3-1.8 MILLIGRAM/SQ. METER, CYCLE 1
  9. INOTUZUMAB OZOGAMICIN [Concomitant]
     Active Substance: INOTUZUMAB OZOGAMICIN
     Dosage: 1.0-1.3 MILLIGRAM/SQ. METER
  10. INOTUZUMAB OZOGAMICIN [Concomitant]
     Active Substance: INOTUZUMAB OZOGAMICIN
     Dosage: 0.6 MILLIGRAM/SQ. METER, CYCLE 1
  11. INOTUZUMAB OZOGAMICIN [Concomitant]
     Active Substance: INOTUZUMAB OZOGAMICIN
     Dosage: 0.3 MILLIGRAM/SQ. METER, CYCLE 1
  12. INOTUZUMAB OZOGAMICIN [Concomitant]
     Active Substance: INOTUZUMAB OZOGAMICIN
     Dosage: 0.3 MILLIGRAM/SQ. METER
  13. INOTUZUMAB OZOGAMICIN [Concomitant]
     Active Substance: INOTUZUMAB OZOGAMICIN
     Dosage: 0.3 MILLIGRAM/SQ. METER
  14. URSODIOL [Concomitant]
     Active Substance: URSODIOL
  15. PREDNISONE [Concomitant]
     Active Substance: PREDNISONE

REACTIONS (6)
  - Venoocclusive disease [Fatal]
  - Death [Fatal]
  - Acute lymphocytic leukaemia recurrent [Unknown]
  - Sepsis [Fatal]
  - Pneumonia [Fatal]
  - Therapy partial responder [Unknown]
